FAERS Safety Report 5824947-4 (Version None)
Quarter: 2008Q3

REPORT INFORMATION
  Report Type: 
  Country: None (occurrence: None)
  Receive Date: 20080728
  Receipt Date: 20080716
  Transmission Date: 20090109
  Serious: Yes (Other)
  Sender: FDA-Public Use
  Company Number: BR-PFIZER INC-2008054101

PATIENT
  Sex: Female

DRUGS (2)
  1. DOSTINEX [Suspect]
     Indication: PITUITARY TUMOUR BENIGN
     Route: 048
  2. TYLENOL [Concomitant]

REACTIONS (13)
  - ALOPECIA [None]
  - ANAEMIA [None]
  - APATHY [None]
  - DEPRESSED MOOD [None]
  - DEPRESSION [None]
  - DIZZINESS [None]
  - DRUG DOSE OMISSION [None]
  - FALL [None]
  - HAEMORRHAGE [None]
  - LACTATION DISORDER [None]
  - MIGRAINE [None]
  - NAUSEA [None]
  - PITUITARY TUMOUR BENIGN [None]
